FAERS Safety Report 4971642-X (Version None)
Quarter: 2006Q2

REPORT INFORMATION
  Report Type: 
  Country: None (occurrence: None)
  Receive Date: 20060406
  Receipt Date: 20060327
  Transmission Date: 20061013
  Serious: Yes (Other)
  Sender: FDA-Public Use
  Company Number: 2006030558

PATIENT
  Age: 60 Year
  Sex: 0

DRUGS (17)
  1. FRAGMIN [Suspect]
     Indication: ANTICOAGULANT THERAPY
     Dosage: SEE IMAGE
     Dates: start: 20050622, end: 20050720
  2. FRAGMIN [Suspect]
     Indication: THROMBOSIS PROPHYLAXIS
     Dosage: SEE IMAGE
     Dates: start: 20050622, end: 20050720
  3. FRAGMIN [Suspect]
     Indication: ANTICOAGULANT THERAPY
     Dosage: SEE IMAGE
     Dates: start: 20050720, end: 20051113
  4. FRAGMIN [Suspect]
     Indication: THROMBOSIS PROPHYLAXIS
     Dosage: SEE IMAGE
     Dates: start: 20050720, end: 20051113
  5. FRAGMIN [Suspect]
     Indication: ANTICOAGULANT THERAPY
     Dosage: SEE IMAGE
     Dates: start: 20051114, end: 20051120
  6. FRAGMIN [Suspect]
     Indication: THROMBOSIS PROPHYLAXIS
     Dosage: SEE IMAGE
     Dates: start: 20051114, end: 20051120
  7. FRAGMIN [Suspect]
     Indication: ANTICOAGULANT THERAPY
     Dosage: SEE IMAGE
     Dates: start: 20051121, end: 20060125
  8. FRAGMIN [Suspect]
     Indication: THROMBOSIS PROPHYLAXIS
     Dosage: SEE IMAGE
     Dates: start: 20051121, end: 20060125
  9. DIOVAN [Concomitant]
  10. HEPARIN [Concomitant]
  11. ENALAPRIL MALEATE [Concomitant]
  12. LASIX [Concomitant]
  13. NORVASC [Concomitant]
  14. CALTAN (CALCIUM CARBONATE) [Concomitant]
  15. RENAGEL [Concomitant]
  16. CALCIUM POLYSTYRENE SULFONATE (CALCIUM POLYSTYRENE SULFONATE) [Concomitant]
  17. EPOGEN [Concomitant]

REACTIONS (6)
  - DIABETIC RETINOPATHY [None]
  - HAEMODIALYSIS [None]
  - HAEMODIALYSIS-INDUCED SYMPTOM [None]
  - RETINAL HAEMORRHAGE [None]
  - THROMBOSIS IN DEVICE [None]
  - VENOUS PRESSURE INCREASED [None]
